FAERS Safety Report 9494351 (Version 2)
Quarter: 2013Q4

REPORT INFORMATION
  Report Type: Spontaneous
  Country: US (occurrence: US)
  Receive Date: 20130903
  Receipt Date: 20131018
  Transmission Date: 20140711
  Serious: Yes (Other)
  Sender: FDA-Public Use
  Company Number: US-JNJFOC-20130813044

PATIENT
  Sex: Male

DRUGS (4)
  1. LEVAQUIN [Suspect]
     Indication: MALAISE
     Route: 048
     Dates: start: 201309, end: 201309
  2. LEVAQUIN [Suspect]
     Indication: MALAISE
     Route: 048
     Dates: start: 201208
  3. LEVAQUIN [Suspect]
     Indication: BRONCHITIS
     Route: 048
     Dates: start: 201309, end: 201309
  4. LEVAQUIN [Suspect]
     Indication: BRONCHITIS
     Route: 048
     Dates: start: 201208

REACTIONS (5)
  - Tendonitis [Unknown]
  - Abasia [Unknown]
  - Bronchitis [Not Recovered/Not Resolved]
  - Arthralgia [Unknown]
  - Muscular weakness [Unknown]
